FAERS Safety Report 4864887-0 (Version None)
Quarter: 2005Q4

REPORT INFORMATION
  Report Type: 
  Country: None (occurrence: None)
  Receive Date: 20051201
  Receipt Date: 20050820
  Transmission Date: 20060501
  Serious: No
  Sender: FDA-Public Use
  Company Number: 2005PV001112

PATIENT
  Age: 92 Year
  Sex: Female
  Weight: 55.7924 kg

DRUGS (14)
  1. BYETTA [Suspect]
     Indication: DIABETES MELLITUS NON-INSULIN-DEPENDENT
     Dosage: 5 MCG; BID; SC
     Route: 058
     Dates: start: 20050720
  2. PROTONIX [Concomitant]
  3. SYNTHROID [Concomitant]
  4. ACIDOPHILUS PROBIOTIC WITH PEPTIN [Concomitant]
  5. PRANDIN [Concomitant]
  6. SEROQUEL [Concomitant]
  7. GLYCILAX [Concomitant]
  8. ALLEGRA [Concomitant]
  9. NITROQUICK [Concomitant]
  10. LASIX [Concomitant]
  11. POTASSIUM [Concomitant]
  12. ISOSORBIDE MONONITRATE [Concomitant]
  13. ESCITALOPRAM OXALATE [Concomitant]
  14. METFORMIN [Concomitant]

REACTIONS (2)
  - ALOPECIA [None]
  - HYPOTRICHOSIS [None]
